FAERS Safety Report 14999917 (Version 1)
Quarter: 2018Q2

REPORT INFORMATION
  Report Type: Other
  Country: IT (occurrence: IT)
  Receive Date: 20180612
  Receipt Date: 20180612
  Transmission Date: 20180711
  Serious: Yes (Hospitalization)
  Sender: FDA-Public Use
  Company Number: IT-ACCORD-068412

PATIENT
  Age: 60 Year
  Sex: Female

DRUGS (6)
  1. GLUCOPHAGE [Concomitant]
     Active Substance: METFORMIN HYDROCHLORIDE
     Dosage: STRENGTH: 1000 MG AND 850 MG
     Route: 048
  2. NASONEX [Concomitant]
     Active Substance: MOMETASONE FUROATE
  3. RAMIPRIL. [Suspect]
     Active Substance: RAMIPRIL
     Indication: HYPERTENSION
     Route: 048
     Dates: start: 20170823, end: 20170823
  4. VENTOLIN [Concomitant]
     Active Substance: ALBUTEROL SULFATE
  5. XYZAL [Concomitant]
     Active Substance: LEVOCETIRIZINE DIHYDROCHLORIDE
  6. FLUSPIRAL [Concomitant]
     Active Substance: FLUTICASONE PROPIONATE

REACTIONS (2)
  - Acute respiratory failure [Unknown]
  - Hypersensitivity [Unknown]

NARRATIVE: CASE EVENT DATE: 20170823
